FAERS Safety Report 4397941-0 (Version None)
Quarter: 2004Q3

REPORT INFORMATION
  Report Type: 
  Country: None (occurrence: None)
  Receive Date: 20040713
  Receipt Date: 20040628
  Transmission Date: 20050211
  Serious: Yes (Hospitalization)
  Sender: FDA-Public Use
  Company Number: 172175

PATIENT
  Age: 59 Year
  Sex: Male

DRUGS (2)
  1. AVONEX [Suspect]
     Indication: MULTIPLE SCLEROSIS
     Dosage: 30 MCG QW IM
     Route: 030
     Dates: start: 20000927
  2. HEART MEDICATION (NOS) [Concomitant]

REACTIONS (4)
  - BLADDER DISORDER [None]
  - BLOOD URINE [None]
  - INTERNATIONAL NORMALISED RATIO INCREASED [None]
  - SCAR [None]
